FAERS Safety Report 7627594-7 (Version None)
Quarter: 2011Q3

REPORT INFORMATION
  Report Type: 
  Country: None (occurrence: None)
  Receive Date: 20110721
  Receipt Date: 20110715
  Transmission Date: 20111222
  Serious: Yes (Other)
  Sender: FDA-Public Use
  Company Number: GB-SANOFI-AVENTIS-2011SA045512

PATIENT
  Age: 45 Year
  Sex: Female

DRUGS (2)
  1. ANGELIQ [Concomitant]
     Indication: HORMONE REPLACEMENT THERAPY
     Route: 048
     Dates: start: 20100621
  2. FEXOFENADINE HCL [Suspect]
     Route: 048
     Dates: start: 20110428

REACTIONS (1)
  - ARRHYTHMIA [None]
